FAERS Safety Report 5797467-3 (Version None)
Quarter: 2008Q2

REPORT INFORMATION
  Report Type: 
  Country: None (occurrence: None)
  Receive Date: 20080630
  Receipt Date: 20080613
  Transmission Date: 20081010
  Serious: Yes (Death, Other)
  Sender: FDA-Public Use
  Company Number: 2008AL006894

PATIENT
  Age: 45 Year
  Sex: Male
  Weight: 117.9352 kg

DRUGS (2)
  1. DIGOXIN [Suspect]
     Indication: ARRHYTHMIA
     Dates: start: 20070524, end: 20070730
  2. COUMADIN [Concomitant]

REACTIONS (5)
  - ATRIAL FIBRILLATION [None]
  - DYSPHAGIA [None]
  - FALL [None]
  - MYOCARDIAL INFARCTION [None]
  - NASOPHARYNGITIS [None]
